FAERS Safety Report 7569693-4 (Version None)
Quarter: 2011Q2

REPORT INFORMATION
  Report Type: 
  Country: None (occurrence: None)
  Receive Date: 20110624
  Receipt Date: 20110621
  Transmission Date: 20111010
  Serious: No
  Sender: FDA-Public Use
  Company Number: US-PFIZER INC-2011138189

PATIENT
  Sex: Male

DRUGS (1)
  1. RELISTOR [Suspect]
     Dosage: UNK
     Dates: end: 20110601

REACTIONS (1)
  - FREQUENT BOWEL MOVEMENTS [None]
